FAERS Safety Report 5425146-0 (Version None)
Quarter: 2007Q3

REPORT INFORMATION
  Report Type: 
  Country: None (occurrence: None)
  Receive Date: 20070824
  Receipt Date: 20070814
  Transmission Date: 20080115
  Serious: Yes (Hospitalization, Other)
  Sender: FDA-Public Use
  Company Number: FR-JNJFOC-20070706442

PATIENT
  Sex: Male

DRUGS (1)
  1. ACETAMINOPHEN AND TRAMADOL HCL [Suspect]
     Indication: BACK PAIN
     Route: 048

REACTIONS (6)
  - DISTURBANCE IN ATTENTION [None]
  - HYPERTENSION [None]
  - MALAISE [None]
  - NAUSEA [None]
  - TACHYPNOEA [None]
  - URINARY RETENTION [None]
